FAERS Safety Report 8374469-4 (Version None)
Quarter: 2012Q2

REPORT INFORMATION
  Report Type: 
  Country: None (occurrence: None)
  Receive Date: 20120521
  Receipt Date: 20120514
  Transmission Date: 20120825
  Serious: Yes (Other)
  Sender: FDA-Public Use
  Company Number: CHPA2012US009051

PATIENT
  Age: 50 Year
  Sex: Female

DRUGS (1)
  1. PREVACID 24 HR [Suspect]
     Indication: HIATUS HERNIA
     Dosage: 30 MG, QD
     Route: 048

REACTIONS (4)
  - OFF LABEL USE [None]
  - OVERDOSE [None]
  - PAIN [None]
  - DISEASE RECURRENCE [None]
